FAERS Safety Report 4984469-X (Version None)
Quarter: 2006Q2

REPORT INFORMATION
  Report Type: 
  Country: None (occurrence: None)
  Receive Date: 20060427
  Receipt Date: 20060414
  Transmission Date: 20061013
  Serious: Yes (Other)
  Sender: FDA-Public Use
  Company Number: JP-JPN-A200601265

PATIENT
  Age: 41 Year
  Sex: Female

DRUGS (1)
  1. PAXIL [Suspect]
     Indication: DEPRESSION
     Dosage: 20MG PER DAY
     Route: 048
     Dates: start: 20060322, end: 20060322

REACTIONS (4)
  - ABDOMINAL PAIN UPPER [None]
  - CEREBRAL ISCHAEMIA [None]
  - HYPERSOMNIA [None]
  - YAWNING [None]
